FAERS Safety Report 20657410 (Version 1)
Quarter: 2022Q1

REPORT INFORMATION
  Report Type: Spontaneous
  Country: US (occurrence: US)
  Receive Date: 20220331
  Receipt Date: 20220331
  Transmission Date: 20220423
  Serious: Yes (Death)
  Sender: FDA-Public Use
  Company Number: US-SPECGX-T202200427

PATIENT
  Sex: Male

DRUGS (2)
  1. OXYCODONE [Suspect]
     Active Substance: OXYCODONE
     Indication: Back pain
     Dosage: UNK
     Route: 065
  2. OXYCODONE AND ACETAMINOPHEN [Concomitant]
     Active Substance: ACETAMINOPHEN\OXYCODONE HYDROCHLORIDE
     Indication: Pain
     Dosage: UNK(1 TO 2 TABLETS AS NEEDED)
     Route: 065

REACTIONS (4)
  - Cardiac disorder [Fatal]
  - Drug dependence [Fatal]
  - Homeless [Unknown]
  - Loss of employment [Unknown]

NARRATIVE: CASE EVENT DATE: 20180101
